FAERS Safety Report 9430067 (Version 2)
Quarter: 2013Q3

REPORT INFORMATION
  Report Type: Spontaneous
  Country: CA (occurrence: None)
  Receive Date: 20130726
  Receipt Date: 20130903
  Transmission Date: 20140515
  Serious: Yes (Hospitalization, Other)
  Sender: FDA-Public Use
  Company Number: CA-012307

PATIENT
  Age: 81 Year
  Sex: Female
  Weight: 50 kg

DRUGS (1)
  1. PICO-SALAX [Suspect]
     Indication: PRODUCT USED FOR UNKNOWN INDICATION
     Dosage: ( 1 DF QD, DOSE = 1.0 DOSAGE FORMS ORAL)
     Route: 048

REACTIONS (5)
  - Confusional state [None]
  - Convulsion [None]
  - Hyponatraemia [None]
  - Nausea [None]
  - Vomiting [None]
